FAERS Safety Report 8554864-0 (Version None)
Quarter: 2012Q3

REPORT INFORMATION
  Report Type: 
  Country: None (occurrence: None)
  Receive Date: 20120731
  Receipt Date: 20120724
  Transmission Date: 20120928
  Serious: Yes (Life-Threatening, Hospitalization)
  Sender: FDA-Public Use
  Company Number: CA-JNJFOC-20120604832

PATIENT
  Age: 61 Year
  Sex: Male
  Weight: 106 kg

DRUGS (3)
  1. XARELTO [Suspect]
     Indication: THROMBOSIS PROPHYLAXIS
     Dosage: DURATION OF DRUG ADMINISTRATION = 3 DAYS
     Route: 048
     Dates: start: 20111207, end: 20111209
  2. XARELTO [Suspect]
     Indication: KNEE ARTHROPLASTY
     Dosage: DURATION OF DRUG ADMINISTRATION = 3 DAYS
     Route: 048
     Dates: start: 20111207, end: 20111209
  3. WARFARIN [Concomitant]

REACTIONS (3)
  - PULMONARY MASS [None]
  - LUNG NEOPLASM MALIGNANT [None]
  - PULMONARY EMBOLISM [None]
